FAERS Safety Report 5845102-8 (Version None)
Quarter: 2008Q3

REPORT INFORMATION
  Report Type: 
  Country: None (occurrence: None)
  Receive Date: 20080813
  Receipt Date: 20080813
  Transmission Date: 20090109
  Serious: Yes (Disabling)
  Sender: FDA-Public Use
  Company Number: None

PATIENT
  Age: 67 Year
  Sex: Female
  Weight: 72.5755 kg

DRUGS (1)
  1. LEVAQUIN [Suspect]
     Indication: LOCALISED INFECTION
     Dosage: ONE PILL A DAY
     Dates: start: 20080301, end: 20080308

REACTIONS (1)
  - TENDON RUPTURE [None]
